FAERS Safety Report 11906840 (Version 2)
Quarter: 2016Q1

REPORT INFORMATION
  Report Type: Spontaneous
  Country: JP (occurrence: JP)
  Receive Date: 20160111
  Receipt Date: 20160212
  Transmission Date: 20160526
  Serious: Yes (Hospitalization)
  Sender: FDA-Public Use
  Company Number: JP-MYLANLABS-2016M1000703

PATIENT

DRUGS (3)
  1. GLIMEPIRIDE. [Suspect]
     Active Substance: GLIMEPIRIDE
     Indication: PRODUCT USED FOR UNKNOWN INDICATION
     Dosage: 3 MG/DAY
     Route: 065
  2. VILDAGLIPTIN [Suspect]
     Active Substance: VILDAGLIPTIN
     Indication: TYPE 2 DIABETES MELLITUS
     Route: 065
  3. GLUCOSE [Concomitant]
     Active Substance: DEXTROSE
     Indication: HYPOGLYCAEMIC COMA
     Dosage: 60ML 50%
     Route: 041

REACTIONS (3)
  - Accidental exposure to product [Recovering/Resolving]
  - Hypoglycaemic coma [Recovering/Resolving]
  - Hyperinsulinaemia [Recovering/Resolving]
